FAERS Safety Report 11716748 (Version 2)
Quarter: 2015Q4

REPORT INFORMATION
  Report Type: Spontaneous
  Country: US (occurrence: US)
  Receive Date: 20151104
  Receipt Date: 20151120
  Transmission Date: 20160304
  Serious: No
  Sender: FDA-Public Use
  Company Number: US-ELI_LILLY_AND_COMPANY-US201106004220

PATIENT
  Sex: Female

DRUGS (2)
  1. FORTEO [Suspect]
     Active Substance: TERIPARATIDE
     Indication: OSTEOPOROSIS
     Dosage: 20 UG, QD
     Route: 065
  2. FORTEO [Suspect]
     Active Substance: TERIPARATIDE
     Dosage: 20 UG, QD
     Route: 065

REACTIONS (9)
  - Fall [Unknown]
  - Asthenopia [Unknown]
  - Joint injury [Unknown]
  - Skin injury [Unknown]
  - Headache [Unknown]
  - Sinusitis [Unknown]
  - Somnolence [Unknown]
  - Fatigue [Unknown]
  - Ear pain [Unknown]
